FAERS Safety Report 20378760 (Version 4)
Quarter: 2022Q2

REPORT INFORMATION
  Report Type: Spontaneous
  Country: JP (occurrence: JP)
  Receive Date: 20220126
  Receipt Date: 20220504
  Transmission Date: 20220721
  Serious: Yes (Hospitalization, Other)
  Sender: FDA-Public Use
  Company Number: JP-MSD-M2022-01304

PATIENT
  Age: 62 Year
  Sex: Male

DRUGS (2)
  1. KEYTRUDA [Suspect]
     Active Substance: PEMBROLIZUMAB
     Indication: Tracheal cancer
     Dosage: 200 MILLIGRAM, Q3W
     Route: 041
     Dates: start: 202105, end: 20211203
  2. CARBOPLATIN [Concomitant]
     Active Substance: CARBOPLATIN
     Indication: Tracheal cancer
     Dosage: UNK
     Route: 065
     Dates: start: 202105, end: 20211203

REACTIONS (2)
  - Cholangitis [Recovering/Resolving]
  - Malignant neoplasm progression [Unknown]

NARRATIVE: CASE EVENT DATE: 20211201
